FAERS Safety Report 13554272 (Version 1)
Quarter: 2017Q2

REPORT INFORMATION
  Report Type: Spontaneous
  Country: US (occurrence: US)
  Receive Date: 20170517
  Receipt Date: 20170517
  Transmission Date: 20170830
  Serious: No
  Sender: FDA-Public Use
  Company Number: None

PATIENT
  Age: 75 Year
  Sex: Female
  Weight: 67.59 kg

DRUGS (24)
  1. TRIAVIL [Concomitant]
     Active Substance: AMITRIPTYLINE HYDROCHLORIDE\PERPHENAZINE
  2. DIAZEPAM. [Concomitant]
     Active Substance: DIAZEPAM
  3. NADALOL [Concomitant]
  4. AFRIN [Concomitant]
     Active Substance: OXYMETAZOLINE
  5. DYMISTA [Concomitant]
     Active Substance: AZELASTINE HYDROCHLORIDE\FLUTICASONE PROPIONATE
  6. PREDNISONE. [Concomitant]
     Active Substance: PREDNISONE
  7. MEDROZ [Concomitant]
  8. FISH OIL [Concomitant]
     Active Substance: FISH OIL
  9. NORFLEX [Concomitant]
     Active Substance: ORPHENADRINE CITRATE
  10. TRETINOIN. [Concomitant]
     Active Substance: TRETINOIN
  11. BUMETANIDE. [Concomitant]
     Active Substance: BUMETANIDE
  12. DIFLUCAN [Concomitant]
     Active Substance: FLUCONAZOLE
  13. VITAMIN D [Concomitant]
     Active Substance: CHOLECALCIFEROL
  14. PRANDIN [Concomitant]
     Active Substance: REPAGLINIDE
  15. FLUTICASONE PROPIONATE. [Concomitant]
     Active Substance: FLUTICASONE PROPIONATE
  16. CLOTRIMAZOLE. [Concomitant]
     Active Substance: CLOTRIMAZOLE
  17. ALPHAGAN P [Concomitant]
     Active Substance: BRIMONIDINE TARTRATE
  18. CA [Concomitant]
  19. AVELOX [Concomitant]
     Active Substance: MOXIFLOXACIN HYDROCHLORIDE
  20. TRULICITY [Suspect]
     Active Substance: DULAGLUTIDE
     Indication: DIABETES MELLITUS
     Dosage: ROUTE - INJECTON/ABDOMEN
     Dates: start: 20170328, end: 20170428
  21. DIOVAN [Concomitant]
     Active Substance: VALSARTAN
  22. AMLODIPINE [Concomitant]
     Active Substance: AMLODIPINE BESYLATE
  23. FREE STYLE LITE STRIPS [Concomitant]
  24. ZINC. [Concomitant]
     Active Substance: ZINC

REACTIONS (4)
  - Oral pain [None]
  - Odynophagia [None]
  - Lymphadenopathy [None]
  - Neck pain [None]

NARRATIVE: CASE EVENT DATE: 20170424
